FAERS Safety Report 23312603 (Version 1)
Quarter: 2023Q4

REPORT INFORMATION
  Report Type: Spontaneous
  Country: US (occurrence: US)
  Receive Date: 20231219
  Receipt Date: 20231219
  Transmission Date: 20240110
  Serious: No
  Sender: FDA-Public Use
  Company Number: US-OPELLA-2023OHG016498

PATIENT

DRUGS (1)
  1. ACT WHITENING ANTICAVITY GENTLE MINT [Suspect]
     Active Substance: SODIUM FLUORIDE
     Indication: Product used for unknown indication
     Dates: start: 202311

REACTIONS (1)
  - Oral mucosal exfoliation [Unknown]

NARRATIVE: CASE EVENT DATE: 20231101
